FAERS Safety Report 25715243 (Version 1)
Quarter: 2025Q3

REPORT INFORMATION
  Report Type: Spontaneous
  Country: NZ (occurrence: NZ)
  Receive Date: 20250822
  Receipt Date: 20250822
  Transmission Date: 20251021
  Serious: Yes (Other)
  Sender: Haleon PLC
  Company Number: NZ-002147023-NVSC2025NZ131473

PATIENT
  Age: 56 Year
  Sex: Female

DRUGS (1)
  1. DICLOFENAC [Suspect]
     Active Substance: DICLOFENAC
     Indication: Product used for unknown indication

REACTIONS (6)
  - Anaphylactic reaction [Unknown]
  - Syncope [Unknown]
  - Dizziness [Unknown]
  - Rash [Unknown]
  - Urticaria [Unknown]
  - Diarrhoea [Unknown]
